FAERS Safety Report 6781058-1 (Version None)
Quarter: 2010Q2

REPORT INFORMATION
  Report Type: 
  Country: None (occurrence: None)
  Receive Date: 20100617
  Receipt Date: 20100617
  Transmission Date: 20101027
  Serious: Yes (Other)
  Sender: FDA-Public Use
  Company Number: None

PATIENT
  Sex: Female
  Weight: 59.8748 kg

DRUGS (4)
  1. RISPERIDONE [Suspect]
     Indication: AFFECTIVE DISORDER
     Dosage: 0.5MG QAM, 2 QHS DAILY ORAL
     Route: 048
     Dates: start: 20080101
  2. RISPERIDONE [Suspect]
     Indication: DEVELOPMENTAL DELAY
     Dosage: 0.5MG QAM, 2 QHS DAILY ORAL
     Route: 048
     Dates: start: 20080101
  3. RISPERIDONE [Suspect]
     Indication: FOETAL ALCOHOL SYNDROME
     Dosage: 0.5MG QAM, 2 QHS DAILY ORAL
     Route: 048
     Dates: start: 20080101
  4. CONCERTA [Concomitant]

REACTIONS (6)
  - AFFECT LABILITY [None]
  - AGGRESSION [None]
  - DEVELOPMENTAL DELAY [None]
  - DRUG INEFFECTIVE [None]
  - FOETAL ALCOHOL SYNDROME [None]
  - PRODUCT SUBSTITUTION ISSUE [None]
